FAERS Safety Report 10882732 (Version 4)
Quarter: 2015Q3

REPORT INFORMATION
  Report Type: Spontaneous
  Country: US (occurrence: US)
  Receive Date: 20150303
  Receipt Date: 20150908
  Transmission Date: 20151125
  Serious: Yes (Death, Other)
  Sender: FDA-Public Use
  Company Number: US-BAYER-2015-028578

PATIENT
  Age: 44 Year
  Sex: Female
  Weight: 81.6 kg

DRUGS (19)
  1. MAGNEVIST [Suspect]
     Active Substance: GADOPENTETATE DIMEGLUMINE
     Indication: NUCLEAR MAGNETIC RESONANCE IMAGING BRAIN
     Dosage: UNK UNK, ONCE
     Dates: start: 20110609, end: 20110609
  2. MEDROL [METHYLPREDNISOLONE] [Concomitant]
  3. LORAZEPAM. [Concomitant]
     Active Substance: LORAZEPAM
  4. MAGNEVIST [Suspect]
     Active Substance: GADOPENTETATE DIMEGLUMINE
     Indication: NUCLEAR MAGNETIC RESONANCE IMAGING BRAIN
     Dosage: 19 ML, ONCE
     Dates: start: 20101015, end: 20101015
  5. MAGNEVIST [Suspect]
     Active Substance: GADOPENTETATE DIMEGLUMINE
     Indication: NUCLEAR MAGNETIC RESONANCE IMAGING BRAIN
     Dosage: 38 ML, ONCE
     Route: 042
     Dates: start: 20101206, end: 20101206
  6. MAGNEVIST [Suspect]
     Active Substance: GADOPENTETATE DIMEGLUMINE
     Indication: GLIOBLASTOMA
     Dosage: 40 ML, ONCE
     Route: 042
     Dates: start: 20100625, end: 20100625
  7. MAGNEVIST [Suspect]
     Active Substance: GADOPENTETATE DIMEGLUMINE
     Indication: NUCLEAR MAGNETIC RESONANCE IMAGING BRAIN
     Dosage: UNK, ONCE
     Dates: start: 20100908, end: 20100908
  8. DILANTIN [Concomitant]
     Active Substance: PHENYTOIN
  9. MAGNEVIST [Suspect]
     Active Substance: GADOPENTETATE DIMEGLUMINE
     Indication: CRANIOTOMY
     Dosage: 20 ML, ONCE
     Route: 042
     Dates: start: 20100630, end: 20100630
  10. METOPROLOL [Concomitant]
     Active Substance: METOPROLOL
  11. MAGNEVIST [Suspect]
     Active Substance: GADOPENTETATE DIMEGLUMINE
     Indication: NUCLEAR MAGNETIC RESONANCE IMAGING BRAIN
     Dosage: 19 ML, ONCE
     Route: 042
     Dates: start: 20101210, end: 20101210
  12. MAGNEVIST [Suspect]
     Active Substance: GADOPENTETATE DIMEGLUMINE
     Indication: NUCLEAR MAGNETIC RESONANCE IMAGING BRAIN
     Dosage: 19 ML, ONCE
     Route: 042
     Dates: start: 20110127, end: 20110127
  13. MAGNEVIST [Suspect]
     Active Substance: GADOPENTETATE DIMEGLUMINE
     Indication: HEADACHE
     Dosage: 20 ML, ONCE
     Route: 042
     Dates: start: 20100728, end: 20100728
  14. ACYCLOVIR [ACICLOVIR] [Concomitant]
     Active Substance: ACYCLOVIR
  15. MAGNEVIST [Suspect]
     Active Substance: GADOPENTETATE DIMEGLUMINE
     Indication: NUCLEAR MAGNETIC RESONANCE IMAGING BRAIN
     Dosage: UNK, ONCE
     Dates: start: 20110216, end: 20110216
  16. MAGNEVIST [Suspect]
     Active Substance: GADOPENTETATE DIMEGLUMINE
     Indication: NUCLEAR MAGNETIC RESONANCE IMAGING BRAIN
     Dosage: 17 ML, ONCE
     Route: 042
     Dates: start: 20110608, end: 20110608
  17. MAGNEVIST [Suspect]
     Active Substance: GADOPENTETATE DIMEGLUMINE
     Indication: NUCLEAR MAGNETIC RESONANCE IMAGING BRAIN
     Dosage: 20 ML, ONCE
     Route: 042
     Dates: start: 20100621, end: 20100621
  18. MAGNEVIST [Suspect]
     Active Substance: GADOPENTETATE DIMEGLUMINE
     Indication: NUCLEAR MAGNETIC RESONANCE IMAGING BRAIN
     Dosage: UNK, ONCE
     Dates: start: 20110131, end: 20110131
  19. OXYCODONE [Concomitant]
     Active Substance: OXYCODONE

REACTIONS (3)
  - Injury [None]
  - Toxicity to various agents [None]
  - Glioblastoma multiforme [Fatal]
